FAERS Safety Report 7330767-4 (Version None)
Quarter: 2011Q1

REPORT INFORMATION
  Report Type: 
  Country: None (occurrence: None)
  Receive Date: 20110225
  Receipt Date: 20110225
  Transmission Date: 20110831
  Serious: Yes (Hospitalization)
  Sender: FDA-Public Use
  Company Number: None

PATIENT
  Sex: Female
  Weight: 92.9874 kg

DRUGS (2)
  1. ANASTROZOLE [Suspect]
     Indication: BREAST CANCER METASTATIC
     Dosage: ANASTROZOLE ONCE DAILY ORAL
     Route: 048
     Dates: start: 20081124, end: 20090124
  2. AZD [Suspect]
     Dosage: AZD 0530 ONCE DAILY ORAL
     Route: 048
     Dates: start: 20081201, end: 20090124

REACTIONS (6)
  - BLOOD CULTURE POSITIVE [None]
  - ESCHERICHIA INFECTION [None]
  - ANAEMIA [None]
  - UROSEPSIS [None]
  - ENTERITIS [None]
  - CLOSTRIDIUM TEST POSITIVE [None]
